FAERS Safety Report 8096949-1 (Version None)
Quarter: 2012Q1

REPORT INFORMATION
  Report Type: 
  Country: None (occurrence: None)
  Receive Date: 20120129
  Receipt Date: 20111213
  Transmission Date: 20120608
  Serious: Yes (Other)
  Sender: FDA-Public Use
  Company Number: US-ABBOTT-11P-163-0834647-00

PATIENT
  Sex: Female
  Weight: 52.21 kg

DRUGS (4)
  1. ANTIVERT [Concomitant]
     Indication: VERTIGO
     Dosage: 2.5 MG - ONE TWICE A DAY
  2. FOLIC ACID [Concomitant]
     Indication: VITAMIN SUPPLEMENTATION
     Dosage: 1 MG - DAILY
  3. HUMIRA [Suspect]
     Indication: RHEUMATOID ARTHRITIS
     Dates: start: 20080101
  4. METHOTREXATE [Concomitant]
     Indication: RHEUMATOID ARTHRITIS
     Dosage: 2.5 MG PILLS - FIVE WEEKLY

REACTIONS (7)
  - VITAMIN D DECREASED [None]
  - PAIN [None]
  - SKIN WARM [None]
  - ERYTHEMA [None]
  - SKIN SWELLING [None]
  - BLOOD IRON DECREASED [None]
  - CELLULITIS [None]
